FAERS Safety Report 18898968 (Version 1)
Quarter: 2021Q1

REPORT INFORMATION
  Report Type: Spontaneous
  Country: US (occurrence: US)
  Receive Date: 20210216
  Receipt Date: 20210216
  Transmission Date: 20210420
  Serious: Yes (Other)
  Sender: FDA-Public Use
  Company Number: US-ACELLA PHARMACEUTICALS, LLC-2106810

PATIENT
  Age: 43 Year
  Sex: Male

DRUGS (3)
  1. BENZONATATE. [Suspect]
     Active Substance: BENZONATATE
     Indication: COUGH
     Route: 065
  2. ALBUTEROL. [Concomitant]
     Active Substance: ALBUTEROL
     Route: 065
  3. AZITHROMYCIN DIHYDRATE. [Concomitant]
     Active Substance: AZITHROMYCIN DIHYDRATE
     Route: 065

REACTIONS (15)
  - Mental status changes [Unknown]
  - Back pain [Unknown]
  - Abnormal behaviour [Unknown]
  - Hyperhidrosis [Recovered/Resolved]
  - Insomnia [Unknown]
  - Depressed mood [Unknown]
  - Anxiety [Unknown]
  - Staring [Unknown]
  - Tremor [Unknown]
  - Anhedonia [Unknown]
  - Tachypnoea [Unknown]
  - Muscle spasms [Unknown]
  - Asthenia [Unknown]
  - Catatonia [Recovered/Resolved]
  - Sleep disorder [Unknown]
